FAERS Safety Report 4877502-7 (Version None)
Quarter: 2006Q1

REPORT INFORMATION
  Report Type: 
  Country: None (occurrence: None)
  Receive Date: 20060109
  Receipt Date: 20060109
  Transmission Date: 20060701
  Serious: Yes (Hospitalization)
  Sender: FDA-Public Use
  Company Number: None

PATIENT
  Age: 62 Year
  Sex: Female
  Weight: 447 kg

DRUGS (2)
  1. BEVACIZUMAB [Suspect]
     Indication: NON-SMALL CELL LUNG CANCER
     Dosage: 15 MG/KG/ 660 Q 21 DA IV
     Route: 042
     Dates: start: 20051221
  2. TARCEVA [Suspect]
     Indication: NON-SMALL CELL LUNG CANCER
     Dosage: 150 MG PO A DAY
     Route: 048
     Dates: start: 20051019

REACTIONS (3)
  - DISEASE RECURRENCE [None]
  - DYSPNOEA [None]
  - MALIGNANT PLEURAL EFFUSION [None]
